FAERS Safety Report 24256138 (Version 1)
Quarter: 2024Q3

REPORT INFORMATION
  Report Type: Spontaneous
  Country: CN (occurrence: CN)
  Receive Date: 20240827
  Receipt Date: 20240827
  Transmission Date: 20241016
  Serious: Yes (Hospitalization)
  Sender: PFIZER
  Company Number: CN-PFIZER INC-PV202400109351

PATIENT
  Age: 31 Year
  Sex: Male
  Weight: 77.3 kg

DRUGS (6)
  1. CYTARABINE [Suspect]
     Active Substance: CYTARABINE
     Indication: Neoplasm
     Dosage: 2 G, 1X/DAY
     Route: 041
     Dates: start: 20240728, end: 20240728
  2. CYTARABINE [Suspect]
     Active Substance: CYTARABINE
     Indication: Non-Hodgkin^s lymphoma
  3. METHOTREXATE SODIUM [Suspect]
     Active Substance: METHOTREXATE SODIUM
     Indication: Neoplasm
     Dosage: 7 G, 1X/DAY
     Route: 041
     Dates: start: 20240727, end: 20240727
  4. METHOTREXATE SODIUM [Suspect]
     Active Substance: METHOTREXATE SODIUM
     Indication: Non-Hodgkin^s lymphoma
  5. ZUBERITAMAB [Suspect]
     Active Substance: ZUBERITAMAB
     Indication: Neoplasm
     Dosage: 70 MG, 1X/DAY
     Route: 041
     Dates: start: 20240726, end: 20240726
  6. ZUBERITAMAB [Suspect]
     Active Substance: ZUBERITAMAB
     Indication: Non-Hodgkin^s lymphoma

REACTIONS (10)
  - Pyrexia [Recovering/Resolving]
  - Asthenia [Recovering/Resolving]
  - Pharyngeal swelling [Recovering/Resolving]
  - Oropharyngeal pain [Recovering/Resolving]
  - Skin disorder [Recovering/Resolving]
  - Mouth ulceration [Recovering/Resolving]
  - Lip ulceration [Recovering/Resolving]
  - Rash erythematous [Recovering/Resolving]
  - Toxicity to various agents [Recovering/Resolving]
  - Off label use [Unknown]

NARRATIVE: CASE EVENT DATE: 20240726
